FAERS Safety Report 18263981 (Version 1)
Quarter: 2020Q3

REPORT INFORMATION
  Report Type: Spontaneous
  Country: EG (occurrence: EG)
  Receive Date: 20200914
  Receipt Date: 20200914
  Transmission Date: 20201103
  Serious: Yes (Death)
  Sender: FDA-Public Use
  Company Number: EG-BAYER-2020-046744

PATIENT
  Age: 64 Year
  Sex: Female
  Weight: 50 kg

DRUGS (4)
  1. STIVARGA [Suspect]
     Active Substance: REGORAFENIB
     Indication: COLORECTAL CANCER STAGE IV
     Dosage: 40 MG, QD
     Dates: start: 20200307
  2. PANADOL [Concomitant]
     Active Substance: ACETAMINOPHEN
     Dosage: DAILY
  3. STIVARGA [Suspect]
     Active Substance: REGORAFENIB
     Indication: METASTASES TO LIVER
  4. BECOZYME [CALCIUM PANTOTHENATE;DEXPANTHENOL;NICOTINAMIDE;PYRIDOXIN [Concomitant]
     Indication: ANAEMIA

REACTIONS (7)
  - Tumour marker increased [None]
  - Metastases to liver [Fatal]
  - Dysphonia [None]
  - Off label use [None]
  - Hepatic enzyme increased [None]
  - Colorectal cancer stage IV [Fatal]
  - Pain in extremity [None]

NARRATIVE: CASE EVENT DATE: 20200315
